FAERS Safety Report 6586770-5 (Version None)
Quarter: 2010Q1

REPORT INFORMATION
  Report Type: 
  Country: None (occurrence: None)
  Receive Date: 20100217
  Receipt Date: 20090715
  Transmission Date: 20100710
  Serious: No
  Sender: FDA-Public Use
  Company Number: US-ALLERGAN-0909901US

PATIENT
  Age: 67 Year
  Sex: Female

DRUGS (2)
  1. BOTOX [Suspect]
     Indication: BLEPHAROSPASM
     Dosage: 90 UNITS, SINGLE
     Route: 030
     Dates: start: 20090413, end: 20090413
  2. BOTOX [Suspect]
     Dosage: 75 UNITS, SINGLE
     Route: 030
     Dates: start: 20081231, end: 20081231

REACTIONS (2)
  - HYPOAESTHESIA ORAL [None]
  - INTRANASAL HYPOAESTHESIA [None]
